FAERS Safety Report 9148529 (Version 1)
Quarter: 2013Q1

REPORT INFORMATION
  Report Type: Spontaneous
  Country: US (occurrence: None)
  Receive Date: 20130227
  Receipt Date: 20130227
  Transmission Date: 20140127
  Serious: Yes (Other)
  Sender: FDA-Public Use
  Company Number: None

PATIENT
  Age: 33 Year
  Sex: Male
  Weight: 77.11 kg

DRUGS (1)
  1. PROPECIA 1MG MERCK [Suspect]
     Indication: ALOPECIA
     Dosage: 1MG 1 PO
     Route: 048
     Dates: start: 20121120, end: 20121120

REACTIONS (10)
  - Testicular pain [None]
  - Nausea [None]
  - Erectile dysfunction [None]
  - Sexual dysfunction [None]
  - Anxiety [None]
  - Muscle atrophy [None]
  - Depression [None]
  - Lethargy [None]
  - Loss of libido [None]
  - Penile size reduced [None]
